FAERS Safety Report 6118499-1 (Version None)
Quarter: 2009Q1

REPORT INFORMATION
  Report Type: 
  Country: None (occurrence: None)
  Receive Date: 20090314
  Receipt Date: 20090220
  Transmission Date: 20090719
  Serious: No
  Sender: FDA-Public Use
  Company Number: US-ABBOTT-09P-163-0558756-00

PATIENT
  Sex: Female
  Weight: 54.48 kg

DRUGS (8)
  1. HUMIRA [Suspect]
     Indication: CROHN'S DISEASE
     Route: 058
     Dates: start: 20080901, end: 20090201
  2. HUMIRA [Suspect]
     Route: 058
     Dates: start: 20090201
  3. LEVOXYL [Concomitant]
     Indication: HYPOTHYROIDISM
     Route: 048
  4. IMODIUM A-D [Concomitant]
     Indication: CROHN'S DISEASE
     Route: 048
  5. IMODIUM A-D [Concomitant]
     Indication: DIARRHOEA
  6. LOMOTIL [Concomitant]
     Indication: DIARRHOEA
     Dosage: AS REQUIRED
     Route: 048
  7. LOMOTIL [Concomitant]
     Indication: CROHN'S DISEASE
  8. HUMIRA [Concomitant]
     Indication: CROHN'S DISEASE
     Dosage: SYRINGE
     Route: 058
     Dates: start: 20090201

REACTIONS (1)
  - INJECTION SITE IRRITATION [None]
